FAERS Safety Report 4901748-2 (Version None)
Quarter: 2006Q1

REPORT INFORMATION
  Report Type: 
  Country: None (occurrence: None)
  Receive Date: 20060202
  Receipt Date: 20060122
  Transmission Date: 20060701
  Serious: Yes (Other)
  Sender: FDA-Public Use
  Company Number: 2006010921

PATIENT
  Age: 2 Year
  Weight: 11.3399 kg

DRUGS (1)
  1. CHILDREN'S PEDIACARE MULTI-SYMPTOM COLD (PSEUDOEPHEDRINE, DEXTROMETHOR [Suspect]
     Indication: NASOPHARYNGITIS
     Dosage: 1/2 TEASPOON ONCE, ORAL
     Route: 048
     Dates: start: 20060122, end: 20060122

REACTIONS (4)
  - ABNORMAL BEHAVIOUR [None]
  - BACK DISORDER [None]
  - HALLUCINATION [None]
  - SCREAMING [None]
